FAERS Safety Report 9049058 (Version 1)
Quarter: 2013Q1

REPORT INFORMATION
  Report Type: Spontaneous
  Country: US (occurrence: None)
  Receive Date: 20130129
  Receipt Date: 20130129
  Transmission Date: 20140127
  Serious: No
  Sender: FDA-Public Use
  Company Number: None

PATIENT
  Age: 51 Year
  Sex: Female
  Weight: 63.5 kg

DRUGS (1)
  1. ESCITALOPRAM 20 MG MYLAN [Suspect]
     Indication: MAJOR DEPRESSION
     Route: 048
     Dates: start: 20120417

REACTIONS (5)
  - Product substitution issue [None]
  - Depression [None]
  - Apathy [None]
  - Middle insomnia [None]
  - Feeling abnormal [None]
